FAERS Safety Report 4779709-6 (Version None)
Quarter: 2005Q3

REPORT INFORMATION
  Report Type: 
  Country: None (occurrence: None)
  Receive Date: 20050927
  Receipt Date: 20050915
  Transmission Date: 20060218
  Serious: Yes (Hospitalization)
  Sender: FDA-Public Use
  Company Number: FR-BRISTOL-MYERS SQUIBB COMPANY-13118062

PATIENT
  Age: 76 Year
  Sex: Female

DRUGS (4)
  1. GLUCOPHAGE [Suspect]
     Indication: DIABETES MELLITUS
     Dosage: THERAPY DURATION LONG TERM
     Route: 048
     Dates: end: 20041105
  2. PROFENID [Suspect]
     Indication: ABDOMINAL PAIN
     Dates: start: 20041103, end: 20041103
  3. SPASFON [Suspect]
     Indication: ABDOMINAL PAIN
     Dates: start: 20041103, end: 20041103
  4. AMAREL [Suspect]
     Indication: DIABETES MELLITUS
     Dosage: THERAPY DURATION LONG TERM
     Route: 048
     Dates: end: 20041105

REACTIONS (4)
  - ACUTE RESPIRATORY DISTRESS SYNDROME [None]
  - CALCULUS URETERIC [None]
  - PYELONEPHRITIS [None]
  - SEPTIC SHOCK [None]
